FAERS Safety Report 20134447 (Version 1)
Quarter: 2021Q4

REPORT INFORMATION
  Report Type: Other
  Country: None (occurrence: US)
  Receive Date: 20211201
  Receipt Date: 20211201
  Transmission Date: 20220303
  Serious: Yes (Hospitalization, Other)
  Sender: FDA-Public Use
  Company Number: US-Innogenix, LLC-2122524

PATIENT
  Age: 35 Year
  Sex: Male

DRUGS (2)
  1. HALOPERIDOL [Suspect]
     Active Substance: HALOPERIDOL
     Indication: Product used for unknown indication
     Route: 045
  2. CANNABIS SATIVA SUBSP. INDICA TOP [Suspect]
     Active Substance: CANNABIS SATIVA SUBSP. INDICA TOP
     Route: 045

REACTIONS (5)
  - Drug abuse [Unknown]
  - Dystonia [Recovered/Resolved]
  - Suicidal ideation [Unknown]
  - Drug interaction [Recovered/Resolved]
  - Hallucination, auditory [Unknown]
